FAERS Safety Report 11280987 (Version 2)
Quarter: 2015Q4

REPORT INFORMATION
  Report Type: Spontaneous
  Country: US (occurrence: US)
  Receive Date: 20150717
  Receipt Date: 20151223
  Transmission Date: 20160304
  Serious: Yes (Death, Hospitalization, Other)
  Sender: FDA-Public Use
  Company Number: US-MERCK-1010USA01133

PATIENT
  Sex: Male
  Weight: 63 kg

DRUGS (3)
  1. GLIMEPIRIDE. [Concomitant]
     Active Substance: GLIMEPIRIDE
  2. JANUVIA [Suspect]
     Active Substance: SITAGLIPTIN PHOSPHATE
     Indication: TYPE 2 DIABETES MELLITUS
     Dosage: 100 MG, BID
     Route: 048
     Dates: start: 20100322, end: 20130408
  3. JANUVIA [Suspect]
     Active Substance: SITAGLIPTIN PHOSPHATE
     Dosage: 100 MG, QD
     Route: 048
     Dates: start: 20101004, end: 20130321

REACTIONS (32)
  - Adenocarcinoma pancreas [Unknown]
  - Metastasis [Unknown]
  - Cerebrovascular accident [Unknown]
  - Transient ischaemic attack [Unknown]
  - Thrombocytopenia [Unknown]
  - Mental status changes [Unknown]
  - Urine ketone body present [Unknown]
  - Weight decreased [Unknown]
  - Nitrite urine [Unknown]
  - Hypokalaemia [Unknown]
  - Hypercholesterolaemia [Unknown]
  - Death [Fatal]
  - Immune thrombocytopenic purpura [Not Recovered/Not Resolved]
  - Cholecystectomy [Unknown]
  - Carotid artery stenosis [Unknown]
  - Gastrooesophageal reflux disease [Unknown]
  - Protein urine [Unknown]
  - Blood urine present [Unknown]
  - Coronary artery disease [Unknown]
  - Palpitations [Unknown]
  - Haematocrit decreased [Unknown]
  - Dysphonia [Unknown]
  - Benign prostatic hyperplasia [Unknown]
  - Large intestine polyp [Unknown]
  - Delirium [Unknown]
  - Dementia [Unknown]
  - Diverticulum [Unknown]
  - Headache [Unknown]
  - Drug ineffective [Not Recovered/Not Resolved]
  - Inappropriate schedule of drug administration [Unknown]
  - Atrial fibrillation [Unknown]
  - Chest pain [Unknown]

NARRATIVE: CASE EVENT DATE: 2010
